FAERS Safety Report 10058700 (Version 2)
Quarter: 2014Q2

REPORT INFORMATION
  Report Type: Report from Study
  Country: US (occurrence: US)
  Receive Date: 20140404
  Receipt Date: 20140509
  Transmission Date: 20141212
  Serious: Yes (Hospitalization)
  Sender: FDA-Public Use
  Company Number: US-SA-2014SA037945

PATIENT
  Age: 44 Year
  Sex: Male
  Weight: 71.89 kg

DRUGS (6)
  1. LANTUS [Suspect]
     Indication: DIABETES MELLITUS
     Dosage: DOSE:40 UNIT(S)
     Route: 065
     Dates: start: 201308
  2. LANTUS [Suspect]
     Indication: DIABETES MELLITUS
     Dosage: DOSE:45 UNIT(S)
     Route: 065
  3. CRESTOR [Concomitant]
     Indication: HYPERCHOLESTEROLAEMIA
  4. BENICAR [Concomitant]
     Indication: HYPERTENSION
  5. NOVOLOG [Concomitant]
     Indication: TYPE 2 DIABETES MELLITUS
     Dosage: 10 UNITS
  6. GLUCAGON [Concomitant]

REACTIONS (1)
  - Investigation [Unknown]
